FAERS Safety Report 22188526 (Version 1)
Quarter: 2023Q2

REPORT INFORMATION
  Report Type: Spontaneous
  Country: US (occurrence: US)
  Receive Date: 20230409
  Receipt Date: 20230409
  Transmission Date: 20230721
  Serious: No
  Sender: FDA-Public Use
  Company Number: US-SANOFI-01564266

PATIENT
  Age: 67 Year
  Sex: Female

DRUGS (1)
  1. THYROGEN [Suspect]
     Active Substance: THYROTROPIN ALFA
     Indication: Diagnostic procedure
     Dosage: 0.9 MG, QD

REACTIONS (1)
  - Wrong technique in product usage process [Unknown]
